FAERS Safety Report 9161397 (Version 2)
Quarter: 2013Q2

REPORT INFORMATION
  Report Type: Spontaneous
  Country: US (occurrence: US)
  Receive Date: 20130313
  Receipt Date: 20130606
  Transmission Date: 20140414
  Serious: No
  Sender: FDA-Public Use
  Company Number: US-009507513-1303USA005133

PATIENT
  Age: 59 Year
  Sex: Female

DRUGS (2)
  1. PEG-INTRON [Suspect]
     Indication: HEPATITIS C
     Dosage: REDIPEN
     Dates: start: 20130308
  2. REBETOL [Suspect]
     Indication: HEPATITIS C
     Dosage: UNK
     Dates: start: 20130308

REACTIONS (16)
  - Heart rate increased [Unknown]
  - Insomnia [Unknown]
  - Tachycardia [Unknown]
  - Chills [Unknown]
  - Headache [Unknown]
  - Anxiety [Unknown]
  - White blood cell count decreased [Unknown]
  - Leukopenia [Unknown]
  - Back pain [Unknown]
  - Musculoskeletal disorder [Unknown]
  - Chills [Unknown]
  - Psychomotor hyperactivity [Unknown]
  - Insomnia [Unknown]
  - Dry eye [Unknown]
  - Dry mouth [Unknown]
  - Cough [Unknown]
